FAERS Safety Report 7149260-7 (Version None)
Quarter: 2010Q4

REPORT INFORMATION
  Report Type: 
  Country: None (occurrence: None)
  Receive Date: 20101209
  Receipt Date: 20101206
  Transmission Date: 20110411
  Serious: Yes (Disabling)
  Sender: FDA-Public Use
  Company Number: IT-ELI_LILLY_AND_COMPANY-IT201012001222

PATIENT
  Sex: Female
  Weight: 45 kg

DRUGS (2)
  1. SOMATROPIN [Suspect]
     Indication: GROWTH HORMONE DEFICIENCY
     Dosage: 0.2 MG, DAILY (1/D)
     Route: 058
     Dates: start: 20000529
  2. EUTIROX [Concomitant]
     Indication: HYPOTHYROIDISM
     Dosage: 75 D/F, UNK
     Dates: start: 19870131

REACTIONS (1)
  - BRAIN NEOPLASM [None]
